FAERS Safety Report 15313089 (Version 1)
Quarter: 2018Q3

REPORT INFORMATION
  Report Type: Spontaneous
  Country: AU (occurrence: AU)
  Receive Date: 20180823
  Receipt Date: 20180823
  Transmission Date: 20181010
  Serious: Yes (Other)
  Sender: FDA-Public Use
  Company Number: AU-B.I. PHARMACEUTICALS,INC./RIDGEFIELD-2018-BI-042572

PATIENT
  Age: 71 Year
  Sex: Male

DRUGS (1)
  1. FLOMAXTRA [Suspect]
     Active Substance: TAMSULOSIN HYDROCHLORIDE
     Indication: BENIGN PROSTATIC HYPERPLASIA
     Dosage: FORM OF ADMIN: MODIFIED?RELEASE TABLET
     Route: 048

REACTIONS (1)
  - Nail infection [Unknown]

NARRATIVE: CASE EVENT DATE: 20180814
